FAERS Safety Report 8072557-3 (Version None)
Quarter: 2012Q1

REPORT INFORMATION
  Report Type: 
  Country: None (occurrence: None)
  Receive Date: 20120126
  Receipt Date: 20120125
  Transmission Date: 20120608
  Serious: Yes (Other)
  Sender: FDA-Public Use
  Company Number: AU-BAYER-2012-007616

PATIENT
  Age: 41 Year
  Sex: Female
  Weight: 70 kg

DRUGS (1)
  1. ULTRAVIST 150 [Suspect]
     Dosage: 45 ML, ONCE
     Route: 042

REACTIONS (6)
  - PARAESTHESIA MUCOSAL [None]
  - EAR PRURITUS [None]
  - PARAESTHESIA ORAL [None]
  - OCULAR HYPERAEMIA [None]
  - EYE PRURITUS [None]
  - ERYTHEMA [None]
